FAERS Safety Report 4469339-8 (Version None)
Quarter: 2004Q4

REPORT INFORMATION
  Report Type: 
  Country: None (occurrence: None)
  Receive Date: 20041008
  Receipt Date: 20040116
  Transmission Date: 20050328
  Serious: No
  Sender: FDA-Public Use
  Company Number: US-BRISTOL-MYERS SQUIBB COMPANY-12480075

PATIENT
  Age: 65 Year
  Sex: Female

DRUGS (3)
  1. AVAPRO [Suspect]
     Dosage: INITIATED RECENTLY
     Route: 048
  2. ISOPTIN [Concomitant]
  3. PANAMAX [Concomitant]

REACTIONS (1)
  - VAGINAL HAEMORRHAGE [None]
